FAERS Safety Report 25307946 (Version 1)
Quarter: 2025Q2

REPORT INFORMATION
  Report Type: Spontaneous
  Country: DE (occurrence: DE)
  Receive Date: 20250513
  Receipt Date: 20250513
  Transmission Date: 20250716
  Serious: Yes (Other)
  Sender: ELI LILLY AND COMPANY
  Company Number: DE-ELI_LILLY_AND_COMPANY-DE202505000724

PATIENT
  Age: 75 Year
  Sex: Female

DRUGS (2)
  1. ABEMACICLIB [Suspect]
     Active Substance: ABEMACICLIB
     Indication: Hidradenocarcinoma
     Dosage: 150 MG, 1-0-1
     Route: 065
  2. LETROZOLE [Concomitant]
     Active Substance: LETROZOLE
     Indication: Hidradenocarcinoma
     Dosage: 2 MG, 1-0-0
     Route: 065

REACTIONS (6)
  - Myocarditis [Unknown]
  - Ejection fraction decreased [Unknown]
  - Glomerular filtration rate decreased [Unknown]
  - Off label use [Unknown]
  - Diarrhoea [Recovered/Resolved]
  - Blood creatinine increased [Unknown]
